FAERS Safety Report 8613423-1 (Version None)
Quarter: 2012Q3

REPORT INFORMATION
  Report Type: 
  Country: None (occurrence: None)
  Receive Date: 20120822
  Receipt Date: 20120731
  Transmission Date: 20120928
  Serious: Yes (Hospitalization)
  Sender: FDA-Public Use
  Company Number: JP-MSD-2012SP036387

PATIENT

DRUGS (14)
  1. REBETOL [Suspect]
     Indication: PRODUCT USED FOR UNKNOWN INDICATION
     Dosage: 800 MG, QD
     Route: 048
     Dates: start: 20120530, end: 20120605
  2. ANTIVIRAL (UNSPECIFIED) [Suspect]
     Indication: PRODUCT USED FOR UNKNOWN INDICATION
     Dosage: 2250 MG, QD
     Route: 048
     Dates: start: 20120530, end: 20120605
  3. TAMSULOSIN HCL [Concomitant]
     Indication: POLLAKIURIA
     Route: 048
     Dates: start: 20120620
  4. OLMESARTAN MEDOXOMIL [Concomitant]
     Indication: PRODUCT USED FOR UNKNOWN INDICATION
     Dosage: FORMULATION: POR (UNSPECIFIED)
     Route: 048
  5. ROXATIDINE ACETATE HCL [Concomitant]
     Route: 048
  6. ROXATIDINE ACETATE HCL [Concomitant]
     Indication: PRODUCT USED FOR UNKNOWN INDICATION
     Dosage: FORMULATION: POR (UNSPECIFIED)
     Route: 048
  7. PEG-INTRON [Suspect]
     Indication: HEPATITIS C
     Dosage: 1.5MCG/KG/WEEK
     Route: 058
     Dates: start: 20120530
  8. TELAVIC [Suspect]
     Indication: HEPATITIS C
     Route: 048
     Dates: start: 20120530, end: 20120604
  9. ALLOPURINOL [Concomitant]
     Indication: HYPERURICAEMIA
     Route: 048
     Dates: start: 20120530
  10. REBETOL [Suspect]
     Indication: HEPATITIS C
     Route: 048
     Dates: start: 20120530, end: 20120604
  11. TELAVIC [Suspect]
     Route: 048
     Dates: start: 20120619
  12. REBETOL [Suspect]
     Route: 048
     Dates: start: 20120619
  13. OLMESARTAN MEDOXOMIL [Concomitant]
     Indication: HYPERTENSION
     Route: 048
  14. PROMAC (POLAPREZINC) [Concomitant]
     Indication: PROPHYLAXIS
     Route: 048
     Dates: start: 20120530

REACTIONS (1)
  - BLOOD CREATININE INCREASED [None]
